FAERS Safety Report 7727606-6 (Version None)
Quarter: 2011Q3

REPORT INFORMATION
  Report Type: 
  Country: None (occurrence: None)
  Receive Date: 20110902
  Receipt Date: 20110824
  Transmission Date: 20111222
  Serious: Yes (Hospitalization)
  Sender: FDA-Public Use
  Company Number: US-ASTRAZENECA-2011SE50769

PATIENT
  Age: 59 Year
  Sex: Female

DRUGS (12)
  1. TRILEPTAL [Concomitant]
     Indication: ANXIETY
     Route: 048
  2. SEROQUEL XR [Suspect]
     Route: 048
  3. SEROQUEL XR [Suspect]
     Route: 048
  4. ZOLOST [Concomitant]
     Dates: start: 20060101
  5. SEROQUEL XR [Suspect]
     Route: 048
  6. SEROQUEL XR [Suspect]
     Route: 048
  7. SEROQUEL XR [Suspect]
     Route: 048
  8. SEROQUEL XR [Suspect]
     Route: 048
  9. SEROQUEL XR [Suspect]
     Route: 048
  10. SEROQUEL XR [Suspect]
     Indication: DEPRESSION
     Route: 048
     Dates: start: 20060501, end: 20090101
  11. SEROQUEL XR [Suspect]
     Indication: ANXIETY
     Route: 048
     Dates: start: 20060501, end: 20090101
  12. SEROQUEL XR [Suspect]
     Route: 048

REACTIONS (8)
  - ACTIVITIES OF DAILY LIVING IMPAIRED [None]
  - NAUSEA [None]
  - GASTRIC DISORDER [None]
  - DRUG DOSE OMISSION [None]
  - ILL-DEFINED DISORDER [None]
  - DECREASED INTEREST [None]
  - MALAISE [None]
  - GASTROINTESTINAL DISORDER [None]
